FAERS Safety Report 11621767 (Version 1)
Quarter: 2015Q4

REPORT INFORMATION
  Report Type: Spontaneous
  Country: US (occurrence: US)
  Receive Date: 20151013
  Receipt Date: 20151013
  Transmission Date: 20160304
  Serious: Yes (Hospitalization, Other)
  Sender: FDA-Public Use
  Company Number: US-ZYDUS-009210

PATIENT
  Age: 17 Year
  Sex: Female

DRUGS (2)
  1. CLONIDINE. [Suspect]
     Active Substance: CLONIDINE
     Indication: PRODUCT USED FOR UNKNOWN INDICATION
     Route: 048
  2. BUPROPION/BUPROPION HYDROCHLORIDE [Suspect]
     Active Substance: BUPROPION HYDROCHLORIDE
     Indication: PRODUCT USED FOR UNKNOWN INDICATION
     Route: 048

REACTIONS (10)
  - Tachycardia [Recovered/Resolved]
  - Anxiety [Recovered/Resolved]
  - Tremor [Recovered/Resolved]
  - Nausea [Recovered/Resolved]
  - Mydriasis [Recovered/Resolved]
  - Hypertension [Recovered/Resolved]
  - Sedation [Recovered/Resolved]
  - Bradycardia [Recovered/Resolved]
  - Overdose [Recovered/Resolved]
  - Generalised tonic-clonic seizure [Recovered/Resolved]
